FAERS Safety Report 5511121-4 (Version None)
Quarter: 2007Q4

REPORT INFORMATION
  Report Type: 
  Country: None (occurrence: None)
  Receive Date: 20071109
  Receipt Date: 20071030
  Transmission Date: 20080405
  Serious: Yes (Death)
  Sender: FDA-Public Use
  Company Number: CA-JNJFOC-20070501282

PATIENT
  Sex: Female
  Weight: 85 kg

DRUGS (4)
  1. REMICADE [Suspect]
     Indication: CROHN'S DISEASE
     Route: 042
  2. WELLBUTIN [Suspect]
     Indication: SMOKING CESSATION THERAPY
  3. SEROQUEL [Concomitant]
     Indication: DEPRESSION
  4. EFFEXOR [Concomitant]
     Indication: DEPRESSION

REACTIONS (4)
  - ACCIDENTAL OVERDOSE [None]
  - GRAND MAL CONVULSION [None]
  - OVERDOSE [None]
  - SUDDEN DEATH [None]
